FAERS Safety Report 6962151-7 (Version None)
Quarter: 2010Q3

REPORT INFORMATION
  Report Type: 
  Country: None (occurrence: None)
  Receive Date: 20100830
  Receipt Date: 20100820
  Transmission Date: 20110219
  Serious: Yes (Death, Hospitalization)
  Sender: FDA-Public Use
  Company Number: 015586

PATIENT
  Sex: Male
  Weight: 57 kg

DRUGS (8)
  1. CERTOLIZUMAB (CDP870) [Suspect]
     Indication: RHEUMATOID ARTHRITIS
     Dosage: SEE IMAGE
     Route: 058
     Dates: start: 20060608, end: 20070719
  2. CERTOLIZUMAB (CDP870) [Suspect]
     Indication: RHEUMATOID ARTHRITIS
     Dosage: SEE IMAGE
     Route: 058
     Dates: start: 20070816, end: 20100701
  3. CERTOLIZUMAB (CDP870) [Suspect]
     Indication: RHEUMATOID ARTHRITIS
     Dosage: SEE IMAGE
     Route: 058
     Dates: start: 20051222
  4. DICLOFENAC SODIUM [Concomitant]
  5. METHOTREXATE [Concomitant]
  6. ENALAPRIL [Concomitant]
  7. ESOMEPRAZOLE MAGNESIUM [Concomitant]
  8. METOPROLOL TARTRATE [Concomitant]

REACTIONS (17)
  - ALANINE AMINOTRANSFERASE INCREASED [None]
  - ASPARTATE AMINOTRANSFERASE INCREASED [None]
  - BLOOD AMYLASE INCREASED [None]
  - BLOOD CREATININE INCREASED [None]
  - CARBOHYDRATE ANTIGEN 19-9 INCREASED [None]
  - CARCINOEMBRYONIC ANTIGEN INCREASED [None]
  - COLON CANCER [None]
  - COLONIC OBSTRUCTION [None]
  - COLONIC POLYP [None]
  - DYSPEPSIA [None]
  - GAMMA-GLUTAMYLTRANSFERASE INCREASED [None]
  - GASTRODUODENITIS [None]
  - HIATUS HERNIA [None]
  - HYPERTENSION [None]
  - LARGE INTESTINAL ULCER [None]
  - METASTASES TO LIVER [None]
  - PEPTIC ULCER [None]
